FAERS Safety Report 10231801 (Version 1)
Quarter: 2014Q2

REPORT INFORMATION
  Report Type: Spontaneous
  Country: CN (occurrence: CN)
  Receive Date: 20140612
  Receipt Date: 20140612
  Transmission Date: 20141212
  Serious: Yes (Hospitalization, Disabling, Other)
  Sender: FDA-Public Use
  Company Number: CN-GILEAD-2014-0104878

PATIENT
  Sex: Male
  Weight: 63.5 kg

DRUGS (1)
  1. HEPSERA [Suspect]
     Indication: HEPATITIS B
     Dosage: 10MG PER DAY
     Route: 048
     Dates: start: 20050725, end: 20130907

REACTIONS (7)
  - Arthralgia [Recovering/Resolving]
  - Spondyloarthropathy [Recovering/Resolving]
  - Osteoporosis [Recovering/Resolving]
  - Condition aggravated [Recovering/Resolving]
  - Bone pain [Recovering/Resolving]
  - Osteomalacia [Recovering/Resolving]
  - Renal injury [Recovering/Resolving]
